FAERS Safety Report 6938320-9 (Version None)
Quarter: 2010Q3

REPORT INFORMATION
  Report Type: 
  Country: None (occurrence: None)
  Receive Date: 20100824
  Receipt Date: 20100812
  Transmission Date: 20110219
  Serious: Yes (Other)
  Sender: FDA-Public Use
  Company Number: US-PFIZER INC-2010078367

PATIENT
  Sex: Male

DRUGS (4)
  1. SUTENT [Suspect]
     Indication: METASTATIC RENAL CELL CARCINOMA
     Dosage: 50 MG, 1X/DAY, CYCLE 4/2
     Route: 048
     Dates: start: 20100501, end: 20100701
  2. SUTENT [Suspect]
     Indication: RENAL CELL CARCINOMA
  3. ACETAMINOPHEN [Concomitant]
     Indication: PYREXIA
  4. CIPROFLOXACIN [Concomitant]
     Indication: PYREXIA
     Dosage: UNK
     Route: 048
     Dates: start: 20100623, end: 20100630

REACTIONS (1)
  - GOUT [None]
